FAERS Safety Report 23349818 (Version 2)
Quarter: 2024Q1

REPORT INFORMATION
  Report Type: Spontaneous
  Country: GR (occurrence: GR)
  Receive Date: 20231229
  Receipt Date: 20240104
  Transmission Date: 20240410
  Serious: Yes (Life-Threatening, Other)
  Sender: FDA-Public Use
  Company Number: GR-ABBVIE-5562888

PATIENT
  Age: 8 Year
  Sex: Male

DRUGS (2)
  1. SEVOFLURANE [Suspect]
     Active Substance: SEVOFLURANE
     Indication: General anaesthesia
     Route: 065
  2. MIDAZOLAM [Concomitant]
     Active Substance: MIDAZOLAM
     Indication: General anaesthesia
     Route: 065

REACTIONS (9)
  - Anaphylactic reaction [Unknown]
  - Haematochezia [Unknown]
  - Oxygen saturation decreased [Unknown]
  - Myocardial necrosis marker increased [Unknown]
  - Erythema [Unknown]
  - Trismus [Unknown]
  - Bradycardia [Unknown]
  - Lactic acidosis [Unknown]
  - Hypotension [Unknown]
